FAERS Safety Report 9108431 (Version 1)
Quarter: 2013Q1

REPORT INFORMATION
  Report Type: Spontaneous
  Country: NL (occurrence: NL)
  Receive Date: 20130222
  Receipt Date: 20130222
  Transmission Date: 20140127
  Serious: Yes (Hospitalization, Other)
  Sender: FDA-Public Use
  Company Number: NL-B.I. PHARMACEUTICALS,INC./RIDGEFIELD-2013-NL-00036NL

PATIENT
  Age: 82 None
  Sex: Male
  Weight: 90 kg

DRUGS (11)
  1. PRADAXA [Suspect]
     Indication: ATRIAL FIBRILLATION
     Dosage: 220 MG
     Dates: start: 201209, end: 201211
  2. PRADAXA [Suspect]
     Dosage: 300 MG
     Dates: start: 201211
  3. PRADAXA [Suspect]
     Dosage: 300 MG
     Dates: start: 20130113
  4. SPIRIVA [Suspect]
     Indication: CHRONIC OBSTRUCTIVE PULMONARY DISEASE
  5. SPIRONOLACTON [Concomitant]
  6. ATENOLOL [Concomitant]
  7. ENALAPRIL [Concomitant]
  8. PANTOZOL [Concomitant]
  9. ATORVASTATIN [Concomitant]
  10. SERETIDE [Concomitant]
  11. NASONEX [Concomitant]

REACTIONS (3)
  - Transient ischaemic attack [Unknown]
  - Fall [Recovered/Resolved]
  - Wound haemorrhage [Recovered/Resolved]
